FAERS Safety Report 9693132 (Version 2)
Quarter: 2013Q4

REPORT INFORMATION
  Report Type: Spontaneous
  Country: IT (occurrence: IT)
  Receive Date: 20131118
  Receipt Date: 20131204
  Transmission Date: 20140711
  Serious: Yes (Other)
  Sender: FDA-Public Use
  Company Number: PHHY2013IT130240

PATIENT
  Age: 24 Year
  Sex: Male

DRUGS (3)
  1. LEPONEX [Suspect]
     Indication: SCHIZOPHRENIA
     Dosage: 375 MG, (350 MG AND 25 MG) DAILY
     Route: 048
     Dates: start: 20130101, end: 20131105
  2. HALDOL [Concomitant]
     Dosage: 60 DRP, UNK
     Route: 048
  3. RIVOTRIL [Concomitant]
     Dosage: 10 DRP, UNK
     Route: 048

REACTIONS (4)
  - Asthenia [Not Recovered/Not Resolved]
  - Oropharyngeal pain [Not Recovered/Not Resolved]
  - Agranulocytosis [Not Recovered/Not Resolved]
  - Pyrexia [Not Recovered/Not Resolved]
